FAERS Safety Report 11719457 (Version 3)
Quarter: 2023Q4

REPORT INFORMATION
  Report Type: Spontaneous
  Country: CA (occurrence: CA)
  Receive Date: 20151110
  Receipt Date: 20231011
  Transmission Date: 20240109
  Serious: Yes (Other)
  Sender: FDA-Public Use
  Company Number: CA-BAXTER-2015BAX059687

PATIENT
  Age: 66 Year
  Sex: Female

DRUGS (15)
  1. CYCLOPHOSPHAMIDE [Suspect]
     Active Substance: CYCLOPHOSPHAMIDE
     Indication: Granulomatosis with polyangiitis
     Dosage: 800.0 MILLIGRAM,1 EVERY 1 MONTHS, DOSAGE FORM: NOT SPECIFIED
     Route: 042
  2. CYCLOPHOSPHAMIDE [Suspect]
     Active Substance: CYCLOPHOSPHAMIDE
     Dosage: 800.0 MILLIGRAM,1 EVERY 1 MONTHS, DOSAGE FORM: NOT SPECIFIED
     Route: 042
  3. PREDNISONE [Suspect]
     Active Substance: PREDNISONE
     Indication: Granulomatosis with polyangiitis
     Dosage: 25.0 MILLIGRAM, 1 EVERY 1 DAYS
     Route: 048
  4. PREDNISONE [Suspect]
     Active Substance: PREDNISONE
     Dosage: 10.0 MILLIGRAM, 1 EVERY 1 DAYS
     Route: 048
  5. PREDNISONE [Suspect]
     Active Substance: PREDNISONE
     Dosage: 8.0 MILLIGRAM, 1 EVERY 1 DAYS
     Route: 048
  6. AZATHIOPRINE [Suspect]
     Active Substance: AZATHIOPRINE
     Indication: Granulomatosis with polyangiitis
     Dosage: 25.0 MILLIGRAM, 1 EVERY 1 DAYS
     Route: 065
  7. AZATHIOPRINE [Suspect]
     Active Substance: AZATHIOPRINE
     Dosage: 2.0 MILLIGRAM, 1 EVERY 1 DAYS
     Route: 065
  8. AZATHIOPRINE [Suspect]
     Active Substance: AZATHIOPRINE
     Dosage: 2.0 MG/KG, 1 EVERY 1 DAYS
     Route: 065
  9. METHYLPREDNISOLONE SODIUM SUCCINATE [Suspect]
     Active Substance: METHYLPREDNISOLONE SODIUM SUCCINATE
     Indication: Granulomatosis with polyangiitis
     Dosage: UNK
     Route: 042
  10. PREDNISONE [Suspect]
     Active Substance: PREDNISONE
     Indication: Granulomatosis with polyangiitis
     Dosage: 10.0 MILLIGRAM, EVERY 1 DAYS
     Route: 048
  11. PREDNISONE [Suspect]
     Active Substance: PREDNISONE
     Dosage: UNK
     Route: 048
  12. PREDNISONE [Suspect]
     Active Substance: PREDNISONE
     Dosage: 25.0 MILLIGRAM, EVERY 1 DAYS, DOSAGE FORM: NOT SPECIFIFED
     Route: 048
  13. PREDNISONE [Suspect]
     Active Substance: PREDNISONE
     Dosage: 8.0 MILLIGRAM, EVERY 1 DAYS
     Route: 048
  14. AZATHIOPRINE [Suspect]
     Active Substance: AZATHIOPRINE
     Indication: Granulomatosis with polyangiitis
     Dosage: 2.0 MG/KG, EVERY 1 DAYS, DOSAGE FORM: NOT SPECIFIED
     Route: 048
  15. AZATHIOPRINE [Suspect]
     Active Substance: AZATHIOPRINE
     Dosage: 2.0 MG/KG
     Route: 065

REACTIONS (4)
  - Off label use [Not Recovered/Not Resolved]
  - Product use in unapproved indication [Not Recovered/Not Resolved]
  - Papule [Not Recovered/Not Resolved]
  - Kaposi^s sarcoma [Not Recovered/Not Resolved]
